FAERS Safety Report 4315800-6 (Version None)
Quarter: 2004Q1

REPORT INFORMATION
  Report Type: 
  Country: None (occurrence: None)
  Receive Date: 20040302
  Receipt Date: 20031218
  Transmission Date: 20041129
  Serious: Yes (Other)
  Sender: FDA-Public Use
  Company Number: US061721

PATIENT
  Age: 40 Year
  Sex: Female
  Weight: 45.36 kg

DRUGS (5)
  1. ENBREL [Suspect]
     Indication: RHEUMATOID ARTHRITIS
     Dosage: 25 MG, TWICE WEEKLY, SC
     Route: 058
     Dates: start: 20000101
  2. HYDROXYCHLOROQUINE PHOSPHATE [Concomitant]
  3. ROFECOXIB [Concomitant]
  4. OMEPRAZOLE [Concomitant]
  5. HORMONE NOS [Concomitant]

REACTIONS (1)
  - OPTIC NEURITIS [None]
